FAERS Safety Report 9992601 (Version 1)
Quarter: 2014Q1

REPORT INFORMATION
  Report Type: Spontaneous
  Country: FR (occurrence: FR)
  Receive Date: 20140310
  Receipt Date: 20140310
  Transmission Date: 20141002
  Serious: Yes (Death, Other)
  Sender: FDA-Public Use
  Company Number: FR-CELGENEUS-056-50794-14024610

PATIENT
  Sex: Male
  Weight: 70 kg

DRUGS (1)
  1. VIDAZA [Suspect]
     Indication: REFRACTORY ANAEMIA WITH AN EXCESS OF BLASTS
     Route: 058
     Dates: start: 20090323, end: 200907

REACTIONS (11)
  - Acute myeloid leukaemia [Fatal]
  - Neutrophil count decreased [Unknown]
  - Haemoglobin decreased [Unknown]
  - Platelet count decreased [Unknown]
  - Lymphocyte count decreased [Unknown]
  - White blood cell count decreased [Unknown]
  - Monocyte count decreased [Unknown]
  - Lung infection [Unknown]
  - Gastrointestinal infection [Unknown]
  - Infection [Unknown]
  - Treatment failure [Unknown]
